FAERS Safety Report 13620895 (Version 4)
Quarter: 2017Q3

REPORT INFORMATION
  Report Type: Spontaneous
  Country: US (occurrence: US)
  Receive Date: 20170607
  Receipt Date: 20170830
  Transmission Date: 20171127
  Serious: Yes (Other)
  Sender: FDA-Public Use
  Company Number: US-TAKEDA-2017MPI005022

PATIENT
  Sex: Female
  Weight: 77.1 kg

DRUGS (2)
  1. NINLARO [Suspect]
     Active Substance: IXAZOMIB
     Indication: PLASMA CELL MYELOMA
     Dosage: 2.3 MG, UNK
     Route: 048
     Dates: start: 20170515, end: 201706
  2. REVLIMID [Suspect]
     Active Substance: LENALIDOMIDE
     Indication: PRODUCT USED FOR UNKNOWN INDICATION
     Dosage: UNK
     Route: 065

REACTIONS (4)
  - Rash [Unknown]
  - Hip surgery [Unknown]
  - Swelling face [Unknown]
  - Urticaria [Recovered/Resolved]
